FAERS Safety Report 6326983-0 (Version None)
Quarter: 2009Q3

REPORT INFORMATION
  Report Type: 
  Country: None (occurrence: None)
  Receive Date: 20090821
  Receipt Date: 20090810
  Transmission Date: 20100115
  Serious: Yes (Other)
  Sender: FDA-Public Use
  Company Number: ADR12052009

PATIENT
  Age: 57 Year
  Sex: Female

DRUGS (3)
  1. PRAVASTATIN [Suspect]
     Dosage: 10 MG - 20 MG ORAL
     Route: 048
  2. ASPIRIN [Concomitant]
  3. ERYTHROMYCIN [Concomitant]

REACTIONS (8)
  - ABSCESS [None]
  - APATHY [None]
  - BACK PAIN [None]
  - DECREASED APPETITE [None]
  - HYPOAESTHESIA [None]
  - MUSCULOSKELETAL PAIN [None]
  - PARAESTHESIA [None]
  - TRANSIENT ISCHAEMIC ATTACK [None]
